FAERS Safety Report 6065217-1 (Version None)
Quarter: 2009Q1

REPORT INFORMATION
  Report Type: 
  Country: None (occurrence: None)
  Receive Date: 20090204
  Receipt Date: 20090122
  Transmission Date: 20090719
  Serious: Yes (Other)
  Sender: FDA-Public Use
  Company Number: PHHY2009DE03798

PATIENT
  Age: 45 Year
  Sex: Male

DRUGS (2)
  1. MYFORTIC [Suspect]
     Indication: CORNEAL TRANSPLANT
     Dosage: 360 MG, BID
     Dates: start: 20080701
  2. CORTICOSTEROID NOS [Suspect]
     Indication: CORNEAL TRANSPLANT
     Dosage: UNK
     Dates: start: 20080701

REACTIONS (6)
  - GASTROINTESTINAL DISORDER [None]
  - GLAUCOMA [None]
  - HAEMOGLOBIN DECREASED [None]
  - INTRAOCULAR PRESSURE TEST ABNORMAL [None]
  - NAUSEA [None]
  - REMOVAL OF TRANSPLANTED ORGAN [None]
